FAERS Safety Report 8355516-2 (Version None)
Quarter: 2012Q2

REPORT INFORMATION
  Report Type: 
  Country: None (occurrence: None)
  Receive Date: 20120512
  Receipt Date: 20120416
  Transmission Date: 20120825
  Serious: Yes (Other)
  Sender: FDA-Public Use
  Company Number: PHHY2012AU027169

PATIENT
  Age: 31 Year
  Sex: Female

DRUGS (3)
  1. SYNTOCINON [Suspect]
     Dosage: 10 IU, UNK
     Route: 042
     Dates: start: 20120323
  2. SYNTOCINON [Suspect]
     Dosage: 40 IU IN 1000 ML HARTMENS
     Dates: start: 20120323
  3. SYNTOCINON [Suspect]
     Dosage: 10 IU, UNK
     Route: 030
     Dates: start: 20120323

REACTIONS (2)
  - POSTPARTUM HAEMORRHAGE [None]
  - MATERNAL EXPOSURE DURING PREGNANCY [None]
